FAERS Safety Report 4828406-7 (Version None)
Quarter: 2005Q4

REPORT INFORMATION
  Report Type: 
  Country: None (occurrence: None)
  Receive Date: 20051115
  Receipt Date: 20050803
  Transmission Date: 20060501
  Serious: Yes (Hospitalization)
  Sender: FDA-Public Use
  Company Number: US-MERCK-0508USA01266

PATIENT
  Age: 63 Year
  Sex: Female
  Weight: 61 kg

DRUGS (21)
  1. VIOXX [Suspect]
     Indication: OSTEOARTHRITIS
     Route: 048
     Dates: start: 20001121, end: 20010622
  2. PROVENTIL [Concomitant]
     Indication: CHRONIC OBSTRUCTIVE PULMONARY DISEASE
     Route: 065
     Dates: start: 20000801
  3. PRILOSEC [Concomitant]
     Indication: GASTROOESOPHAGEAL REFLUX DISEASE
     Route: 065
     Dates: start: 19991001
  4. PREVACID [Concomitant]
     Indication: GASTROOESOPHAGEAL REFLUX DISEASE
     Route: 065
     Dates: start: 19991001
  5. LIPITOR [Concomitant]
     Indication: HYPERLIPIDAEMIA
     Route: 065
     Dates: start: 19990501, end: 20010701
  6. ZOCOR [Concomitant]
     Indication: HYPERLIPIDAEMIA
     Route: 065
     Dates: start: 19990501
  7. ZETIA [Concomitant]
     Indication: HYPERLIPIDAEMIA
     Route: 065
     Dates: start: 19990501
  8. AXOCET (ACETAMINOPHEN (+) BUTALBITAL) [Concomitant]
     Indication: OSTEOARTHRITIS
     Route: 065
     Dates: start: 19990401, end: 20010501
  9. DARVOCET-N 100 [Concomitant]
     Indication: OSTEOARTHRITIS
     Route: 065
     Dates: start: 19990401, end: 20001201
  10. HYDROCODONE BITARTRATE [Concomitant]
     Indication: OSTEOARTHRITIS
     Route: 065
     Dates: start: 19990401
  11. TOPROL-XL [Concomitant]
     Indication: HYPERTENSION
     Route: 065
     Dates: start: 19990301
  12. DIGITEK [Concomitant]
     Indication: PALPITATIONS
     Route: 065
     Dates: start: 19990601
  13. PREMARIN [Concomitant]
     Indication: HORMONE REPLACEMENT THERAPY
     Route: 065
     Dates: start: 19990401, end: 20010101
  14. WELLBUTRIN SR [Concomitant]
     Indication: EX-SMOKER
     Route: 065
     Dates: start: 20010201, end: 20031201
  15. XANAX [Concomitant]
     Indication: ANXIETY DISORDER
     Route: 065
     Dates: start: 20000101
  16. LEVOXYL [Concomitant]
     Route: 065
  17. BETA-VAL [Concomitant]
     Route: 065
  18. CIPRO [Concomitant]
     Route: 065
  19. DIFLUCAN [Concomitant]
     Route: 065
  20. TRAZODONE HYDROCHLORIDE [Concomitant]
     Route: 065
  21. LORTAB [Concomitant]
     Route: 065
     Dates: start: 20010423

REACTIONS (2)
  - ACUTE MYOCARDIAL INFARCTION [None]
  - PALPITATIONS [None]
